FAERS Safety Report 6024385-8 (Version None)
Quarter: 2008Q4

REPORT INFORMATION
  Report Type: 
  Country: None (occurrence: None)
  Receive Date: 20081229
  Receipt Date: 20081211
  Transmission Date: 20090506
  Serious: Yes (Death, Congenital Anomaly)
  Sender: FDA-Public Use
  Company Number: 8038330

PATIENT
  Sex: Male

DRUGS (3)
  1. KEPPRA [Suspect]
     Indication: EPILEPSY
     Dosage: 750 MG 2/D TRP
     Route: 064
     Dates: end: 20080919
  2. LAMOTRIGINE [Suspect]
     Indication: EPILEPSY
     Dosage: 300 MG/ D TRP
     Route: 064
     Dates: end: 20080919
  3. FOLIC ACID [Concomitant]

REACTIONS (15)
  - ANAL ATRESIA [None]
  - ASPHYXIA [None]
  - BLADDER AGENESIS [None]
  - CAUDAL REGRESSION SYNDROME [None]
  - CONGENITAL FOOT MALFORMATION [None]
  - CONGENITAL GENITAL MALFORMATION [None]
  - CONGENITAL INTESTINAL MALFORMATION [None]
  - CONGENITAL PNEUMONIA [None]
  - FOETAL DISORDER [None]
  - FOETAL MALFORMATION [None]
  - LIMB MALFORMATION [None]
  - MATERNAL DRUGS AFFECTING FOETUS [None]
  - PNEUMONIA [None]
  - POTTER'S SYNDROME [None]
  - VASCULAR ANOMALY [None]
